FAERS Safety Report 5485292-2 (Version None)
Quarter: 2007Q4

REPORT INFORMATION
  Report Type: 
  Country: None (occurrence: None)
  Receive Date: 20071010
  Receipt Date: 20071010
  Transmission Date: 20080405
  Serious: Yes (Other)
  Sender: FDA-Public Use
  Company Number: None

PATIENT
  Sex: Female
  Weight: 70.3075 kg

DRUGS (1)
  1. CYMBALTA [Suspect]
     Indication: FIBROMYALGIA
     Dosage: 25MGS 1X A DAY PO
     Route: 048
     Dates: start: 20060811, end: 20070911

REACTIONS (16)
  - ALOPECIA [None]
  - AMNESIA [None]
  - ANGER [None]
  - DIARRHOEA [None]
  - DIZZINESS [None]
  - DRUG WITHDRAWAL SYNDROME [None]
  - EMOTIONAL DISORDER [None]
  - EXOPHTHALMOS [None]
  - FATIGUE [None]
  - FEELING ABNORMAL [None]
  - LACRIMATION INCREASED [None]
  - LOSS OF LIBIDO [None]
  - MOOD SWINGS [None]
  - NAUSEA [None]
  - SUICIDAL IDEATION [None]
  - WEIGHT INCREASED [None]
